FAERS Safety Report 12610976 (Version 6)
Quarter: 2018Q1

REPORT INFORMATION
  Report Type: Spontaneous
  Country: US (occurrence: US)
  Receive Date: 20160801
  Receipt Date: 20180116
  Transmission Date: 20180508
  Serious: Yes (Other)
  Sender: FDA-Public Use
  Company Number: US-PFIZER INC-2016365368

PATIENT
  Age: 61 Year
  Sex: Female
  Weight: 75.73 kg

DRUGS (4)
  1. LANTUS [Concomitant]
     Active Substance: INSULIN GLARGINE
     Indication: DIABETES MELLITUS
     Dosage: 80 IU, DAILY (80 UNIT INJECTION DAILY)
  2. LYRICA [Suspect]
     Active Substance: PREGABALIN
     Indication: NEUROPATHY PERIPHERAL
     Dosage: 100 MG, 3X/DAY
     Route: 048
     Dates: start: 2013, end: 20170812
  3. NOVOLOG [Concomitant]
     Active Substance: INSULIN ASPART
     Indication: DIABETES MELLITUS
     Dosage: SLIDING SCALE (3 UNITS PER CARBOHYDRATE)
  4. LYRICA [Suspect]
     Active Substance: PREGABALIN
     Dosage: UNK, UNK (LYRICA STAYS AT 300 (UNITS NOT PROBED))

REACTIONS (5)
  - Pain [Unknown]
  - Cough [Unknown]
  - Gait inability [Not Recovered/Not Resolved]
  - Pneumonia [Recovering/Resolving]
  - Wheezing [Unknown]

NARRATIVE: CASE EVENT DATE: 201708
